FAERS Safety Report 24166581 (Version 1)
Quarter: 2024Q3

REPORT INFORMATION
  Report Type: Spontaneous
  Country: FR (occurrence: FR)
  Receive Date: 20240802
  Receipt Date: 20240802
  Transmission Date: 20241016
  Serious: Yes (Hospitalization)
  Sender: RANBAXY
  Company Number: FR-AFSSAPS-AM2024000383

PATIENT
  Age: 45 Year
  Sex: Female
  Weight: 95 kg

DRUGS (10)
  1. NOREPINEPHRINE [Suspect]
     Active Substance: NOREPINEPHRINE\NOREPINEPHRINE BITARTRATE
     Indication: Product used for unknown indication
     Dosage: 24.66 MILLIGRAM, DAILY
     Route: 040
     Dates: start: 20240227, end: 20240229
  2. MIDAZOLAM [Suspect]
     Active Substance: MIDAZOLAM
     Indication: Sedation
     Dosage: 2.92 GRAM, IN TOTAL
     Route: 040
     Dates: start: 20240227, end: 20240307
  3. VANCOMYCIN [Suspect]
     Active Substance: VANCOMYCIN
     Indication: Peritonitis
     Dosage: 2.5 GRAM, DAILY
     Route: 040
     Dates: start: 20240228, end: 20240301
  4. ENOXAPARIN [Suspect]
     Active Substance: ENOXAPARIN
     Indication: Cardiovascular event prophylaxis
     Dosage: 4000 INTERNATIONAL UNIT, DAILY
     Route: 058
     Dates: start: 20240228, end: 20240307
  5. SUFENTANIL [Suspect]
     Active Substance: SUFENTANIL
     Indication: Sedation
     Dosage: 3.62 MILLIGRAM, IN TOTAL
     Route: 040
     Dates: start: 20240227, end: 20240307
  6. HYDROCORTISONE [Suspect]
     Active Substance: HYDROCORTISONE\HYDROCORTISONE ACETATE
     Indication: Product used for unknown indication
     Dosage: 1.15 GRAM, IN TOTAL
     Route: 040
     Dates: start: 20240228, end: 20240305
  7. PIPERACILLIN SODIUM\TAZOBACTAM SODIUM [Suspect]
     Active Substance: PIPERACILLIN SODIUM\TAZOBACTAM SODIUM
     Indication: Peritonitis
     Dosage: 16 GRAM, DAILY
     Route: 040
     Dates: start: 20240228, end: 20240306
  8. CASPOFUNGIN [Suspect]
     Active Substance: CASPOFUNGIN
     Indication: Peritonitis
     Dosage: 70 MILLIGRAM, DAILY
     Route: 040
     Dates: start: 20240228, end: 20240306
  9. GENTAMICIN [Suspect]
     Active Substance: GENTAMICIN
     Indication: Peritonitis
     Dosage: 600 MILLIGRAM, IN TOTAL
     Route: 040
     Dates: start: 20240228, end: 20240228
  10. CISATRACURIUM [Suspect]
     Active Substance: CISATRACURIUM
     Indication: Sedation
     Dosage: 2.85 MILLIGRAM, IN TOTAL
     Route: 040
     Dates: start: 20240227, end: 20240307

REACTIONS (1)
  - Acute kidney injury [Recovered/Resolved with Sequelae]

NARRATIVE: CASE EVENT DATE: 20240229
